FAERS Safety Report 5661995-1 (Version None)
Quarter: 2008Q1

REPORT INFORMATION
  Report Type: 
  Country: None (occurrence: None)
  Receive Date: 20080201
  Receipt Date: 20060817
  Transmission Date: 20080703
  Serious: No
  Sender: FDA-Public Use
  Company Number: 20084514

PATIENT
  Sex: Female

DRUGS (1)
  1. LIORESAL [Suspect]
     Indication: MUSCLE SPASTICITY
     Dosage: DAILY, INTRATHECAL
     Route: 037

REACTIONS (3)
  - PAIN [None]
  - PYREXIA [None]
  - VOMITING [None]
